FAERS Safety Report 8107511-6 (Version None)
Quarter: 2012Q1

REPORT INFORMATION
  Report Type: 
  Country: None (occurrence: None)
  Receive Date: 20120202
  Receipt Date: 20120131
  Transmission Date: 20120608
  Serious: Yes (Hospitalization)
  Sender: FDA-Public Use
  Company Number: JP-ROCHE-1026130

PATIENT
  Sex: Male
  Weight: 60 kg

DRUGS (8)
  1. PROMACTA [Concomitant]
     Indication: GASTRITIS
     Route: 048
     Dates: start: 20110928
  2. XELODA [Suspect]
     Indication: COLON CANCER METASTATIC
     Route: 048
     Dates: start: 20110928
  3. DECADRON [Concomitant]
     Route: 042
     Dates: start: 20110928
  4. OLMESARTAN MEDOXOMIL [Concomitant]
     Indication: HYPERTENSION
     Route: 048
     Dates: start: 19231111
  5. OXALIPLATIN [Suspect]
     Indication: COLON CANCER METASTATIC
     Route: 041
     Dates: start: 20110928
  6. AVASTIN [Suspect]
     Indication: COLON CANCER METASTATIC
     Route: 041
     Dates: start: 20111021
  7. MAGMITT [Concomitant]
     Indication: CONSTIPATION
     Route: 048
     Dates: start: 20110928
  8. VITAMEDIN [Concomitant]
     Route: 048
     Dates: start: 20110928

REACTIONS (1)
  - CROHN'S DISEASE [None]
